FAERS Safety Report 5765624-8 (Version None)
Quarter: 2008Q2

REPORT INFORMATION
  Report Type: 
  Country: None (occurrence: None)
  Receive Date: 20080606
  Receipt Date: 20080606
  Transmission Date: 20081010
  Serious: Yes (Other)
  Sender: FDA-Public Use
  Company Number: None

PATIENT
  Sex: Male
  Weight: 12.2471 kg

DRUGS (1)
  1. SINGULAIR [Suspect]
     Indication: ASTHMA
     Dosage: 1 5MG CHEWABLE ONCE A DAY PO
     Route: 048
     Dates: start: 20071027, end: 20071125

REACTIONS (8)
  - ABNORMAL BEHAVIOUR [None]
  - CRYING [None]
  - DYSPNOEA [None]
  - INSOMNIA [None]
  - NASAL CONGESTION [None]
  - ORAL INTAKE REDUCED [None]
  - SLEEP TERROR [None]
  - SOCIAL AVOIDANT BEHAVIOUR [None]
